FAERS Safety Report 4341066-7 (Version None)
Quarter: 2004Q2

REPORT INFORMATION
  Report Type: 
  Country: None (occurrence: None)
  Receive Date: 20040419
  Receipt Date: 20040415
  Transmission Date: 20050107
  Serious: Yes (Other)
  Sender: FDA-Public Use
  Company Number: US-BRISTOL-MYERS SQUIBB COMPANY-12561379

PATIENT
  Age: 53 Year
  Sex: Female

DRUGS (1)
  1. ERBITUX [Suspect]
     Indication: COLON CANCER METASTATIC
     Dosage: INITIAL DOSE
     Route: 042
     Dates: start: 20040414, end: 20040414

REACTIONS (8)
  - CHEST DISCOMFORT [None]
  - DIZZINESS [None]
  - DYSPNOEA [None]
  - FEELING ABNORMAL [None]
  - FLUSHING [None]
  - NAUSEA [None]
  - OXYGEN SATURATION DECREASED [None]
  - WHEEZING [None]
